FAERS Safety Report 6430215-2 (Version None)
Quarter: 2009Q4

REPORT INFORMATION
  Report Type: 
  Country: None (occurrence: None)
  Receive Date: 20091104
  Receipt Date: 20091104
  Transmission Date: 20100525
  Serious: Yes (Hospitalization)
  Sender: FDA-Public Use
  Company Number: None

PATIENT
  Sex: Female
  Weight: 22.1582 kg

DRUGS (1)
  1. SORAFENIB 200MG BAYER HEALTHCARE PHARMACEUTICALS [Suspect]
     Indication: NEOPLASM
     Dosage: 400MG BID PO
     Route: 048
     Dates: start: 20091014, end: 20091027

REACTIONS (13)
  - ABDOMINAL PAIN [None]
  - ASTHENIA [None]
  - DYSPNOEA [None]
  - LETHARGY [None]
  - LEUKOCYTOSIS [None]
  - MOBILITY DECREASED [None]
  - MUSCLE TWITCHING [None]
  - MUSCULAR WEAKNESS [None]
  - TACHYCARDIA [None]
  - TREMOR [None]
  - TROPONIN INCREASED [None]
  - URINE LEUKOCYTE ESTERASE POSITIVE [None]
  - WHITE BLOOD CELLS URINE POSITIVE [None]
